FAERS Safety Report 4821188-4 (Version None)
Quarter: 2005Q4

REPORT INFORMATION
  Report Type: 
  Country: None (occurrence: None)
  Receive Date: 20051103
  Receipt Date: 20051021
  Transmission Date: 20060501
  Serious: Yes (Other)
  Sender: FDA-Public Use
  Company Number: 2005145562

PATIENT
  Age: 32 Year
  Sex: Female
  Weight: 65.318 kg

DRUGS (2)
  1. CELEBREX [Suspect]
     Indication: BACK PAIN
     Dosage: 200 MG (200 MG, 1 IN 1 D), ORAL
     Route: 048
     Dates: start: 20051020, end: 20051020
  2. NECON (ETHINYLESTRADIOL, NORETHISTERONE) [Concomitant]

REACTIONS (5)
  - DRY THROAT [None]
  - MUSCLE TWITCHING [None]
  - RASH [None]
  - SWELLING [None]
  - THIRST [None]
